FAERS Safety Report 18535894 (Version 1)
Quarter: 2020Q4

REPORT INFORMATION
  Report Type: Spontaneous
  Country: US (occurrence: US)
  Receive Date: 20201123
  Receipt Date: 20201123
  Transmission Date: 20210114
  Serious: No
  Sender: FDA-Public Use
  Company Number: US-ROCHE-2538838

PATIENT
  Age: 12 Year
  Sex: Female
  Weight: 40.86 kg

DRUGS (1)
  1. TAMIFLU [Suspect]
     Active Substance: OSELTAMIVIR PHOSPHATE
     Indication: INFLUENZA
     Dosage: ONGOING:NO
     Route: 048

REACTIONS (3)
  - Swelling face [Unknown]
  - Dyspnoea [Unknown]
  - Overdose [Unknown]
